APPROVED DRUG PRODUCT: PROPAFENONE HYDROCHLORIDE
Active Ingredient: PROPAFENONE HYDROCHLORIDE
Strength: 225MG
Dosage Form/Route: TABLET;ORAL
Application: A075203 | Product #002 | TE Code: AB
Applicant: WATSON LABORATORIES
Approved: Oct 24, 2000 | RLD: No | RS: No | Type: RX